FAERS Safety Report 8152141-3 (Version None)
Quarter: 2012Q1

REPORT INFORMATION
  Report Type: 
  Country: None (occurrence: None)
  Receive Date: 20120215
  Receipt Date: 20120215
  Transmission Date: 20120608
  Serious: Yes (Hospitalization)
  Sender: FDA-Public Use
  Company Number: None

PATIENT
  Sex: Male
  Weight: 94.6 kg

DRUGS (2)
  1. PACLITAXEL [Suspect]
     Dosage: 588 MG
     Dates: end: 20111205
  2. CARBOPLATIN [Suspect]
     Dosage: 1686 MG
     Dates: end: 20111205

REACTIONS (3)
  - ATRIAL FIBRILLATION [None]
  - CARDIAC FAILURE CONGESTIVE [None]
  - ACUTE MYOCARDIAL INFARCTION [None]
